FAERS Safety Report 6171800-5 (Version None)
Quarter: 2009Q2

REPORT INFORMATION
  Report Type: 
  Country: None (occurrence: None)
  Receive Date: 20090429
  Receipt Date: 20090420
  Transmission Date: 20091009
  Serious: Yes (Other)
  Sender: FDA-Public Use
  Company Number: US-ROCHE-572845

PATIENT
  Sex: Female

DRUGS (7)
  1. BONIVA [Suspect]
     Indication: OSTEOPOROSIS
     Route: 048
     Dates: start: 20060401, end: 20071201
  2. BONIVA [Suspect]
     Dosage: FORM: INJECTION
     Route: 042
     Dates: start: 20080401
  3. NITROGLYCERIN [Concomitant]
     Route: 060
  4. 1 CONCOMITANT UNSPECIFIED DRUG [Concomitant]
     Dosage: DRUG: HEART MEDICINE.
  5. 1 CONCOMITANT UNSPECIFIED DRUG [Concomitant]
     Dosage: DRUG: HIGH BLOOD PRESSURE MEDICATION
  6. 1 CONCOMITANT UNSPECIFIED DRUG [Concomitant]
  7. 1 CONCOMITANT UNSPECIFIED DRUG [Concomitant]

REACTIONS (5)
  - DYSPEPSIA [None]
  - FAILURE OF IMPLANT [None]
  - FALL [None]
  - PELVIC FRACTURE [None]
  - TOOTH EXTRACTION [None]
